FAERS Safety Report 4663272-4 (Version None)
Quarter: 2005Q2

REPORT INFORMATION
  Report Type: 
  Country: None (occurrence: None)
  Receive Date: 20050511
  Receipt Date: 20050217
  Transmission Date: 20051028
  Serious: Yes (Disabling)
  Sender: FDA-Public Use
  Company Number: 387592

PATIENT
  Age: 51 Year
  Sex: Male
  Weight: 90.3 kg

DRUGS (5)
  1. PEGASYS [Suspect]
     Indication: HEPATITIS C VIRUS
     Dosage: 180 MCG 1 PER WEEK SUBCUTANEOUS
     Route: 058
     Dates: start: 20041008, end: 20041122
  2. COPEGUS [Suspect]
     Indication: HEPATITIS C VIRUS
     Dosage: 1200 MG DAILY ORAL
     Route: 048
     Dates: start: 20041008, end: 20041122
  3. PAXIL [Concomitant]
  4. LANTUS [Concomitant]
  5. REGULAR INSULIN [Concomitant]

REACTIONS (10)
  - ANXIETY [None]
  - BLOOD GLUCOSE INCREASED [None]
  - DEPRESSION [None]
  - HALLUCINATION [None]
  - HYPERHIDROSIS [None]
  - INSOMNIA [None]
  - MEMORY IMPAIRMENT [None]
  - NAUSEA [None]
  - TREMOR [None]
  - VOMITING [None]
